FAERS Safety Report 5327599-5 (Version None)
Quarter: 2007Q2

REPORT INFORMATION
  Report Type: 
  Country: None (occurrence: None)
  Receive Date: 20070222
  Receipt Date: 20060828
  Transmission Date: 20071010
  Serious: Yes (Other)
  Sender: FDA-Public Use
  Company Number: 0810002

PATIENT
  Sex: Male

DRUGS (1)
  1. ORFADIN [Suspect]
     Indication: ALKAPTONURIA
     Dosage: 2 MILLIGRAM A DAY ORAL
     Route: 048
     Dates: start: 20051201, end: 20060213

REACTIONS (4)
  - CORNEAL LESION [None]
  - CORNEAL OPACITY [None]
  - EYE PAIN [None]
  - PINGUECULA [None]
